FAERS Safety Report 10540470 (Version 1)
Quarter: 2014Q4

REPORT INFORMATION
  Report Type: Spontaneous
  Country: CA (occurrence: CA)
  Receive Date: 20141024
  Receipt Date: 20141024
  Transmission Date: 20150529
  Serious: Yes (Hospitalization, Other)
  Sender: FDA-Public Use
  Company Number: CA-BANPHARM-20143155

PATIENT
  Age: 42 Year
  Sex: Male
  Weight: 78.5 kg

DRUGS (2)
  1. CALCITRIOL. [Suspect]
     Active Substance: CALCITRIOL
  2. CALCIUM [Suspect]
     Active Substance: CALCIUM

REACTIONS (7)
  - Myocardial infarction [Recovered/Resolved]
  - Arteriosclerosis coronary artery [Unknown]
  - Bursa calcification [Unknown]
  - Calcinosis [Recovered/Resolved]
  - Cutaneous calcification [Unknown]
  - Acute myocardial infarction [None]
  - Drug monitoring procedure not performed [Recovered/Resolved]
